FAERS Safety Report 7702476-0 (Version None)
Quarter: 2011Q3

REPORT INFORMATION
  Report Type: 
  Country: None (occurrence: None)
  Receive Date: 20110823
  Receipt Date: 20110812
  Transmission Date: 20111222
  Serious: Yes (Life-Threatening, Hospitalization, Other)
  Sender: FDA-Public Use
  Company Number: AR-BIOGENIDEC-2011BI028674

PATIENT
  Age: 51 Year
  Sex: Female

DRUGS (1)
  1. TYSABRI [Suspect]
     Indication: MULTIPLE SCLEROSIS
     Route: 042
     Dates: start: 20091020

REACTIONS (8)
  - SEPSIS SYNDROME [None]
  - CARDIAC FAILURE [None]
  - PHLEBITIS [None]
  - RENAL FAILURE [None]
  - RESPIRATORY TRACT INFECTION [None]
  - INFLUENZA [None]
  - RESPIRATORY FAILURE [None]
  - MULTIPLE SCLEROSIS RELAPSE [None]
